FAERS Safety Report 9786459 (Version 2)
Quarter: 2013Q4

REPORT INFORMATION
  Report Type: Report from Study
  Country: CA (occurrence: CA)
  Receive Date: 20131227
  Receipt Date: 20131227
  Transmission Date: 20140711
  Serious: Yes (Other)
  Sender: FDA-Public Use
  Company Number: CA-UCBSA-105590

PATIENT
  Age: 63 Year
  Sex: Female
  Weight: 81.6 kg

DRUGS (12)
  1. CIMZIA [Suspect]
     Indication: RHEUMATOID ARTHRITIS
     Route: 058
     Dates: start: 20120321
  2. CIMZIA [Suspect]
     Indication: RHEUMATOID ARTHRITIS
     Dosage: WEEKS: 0-2-4.
     Route: 058
     Dates: start: 20120208, end: 20120307
  3. FOLIC ACID [Concomitant]
  4. MTX [Concomitant]
     Indication: RHEUMATOID ARTHRITIS
     Route: 048
     Dates: start: 1995
  5. PREDNISONE [Concomitant]
     Indication: RHEUMATOID ARTHRITIS
     Route: 048
     Dates: start: 2009
  6. SSZ [Concomitant]
     Indication: RHEUMATOID ARTHRITIS
     Route: 048
     Dates: start: 1995
  7. PLAQUENIL [Concomitant]
     Indication: RHEUMATOID ARTHRITIS
     Route: 048
     Dates: start: 1995
  8. CELEBREX [Concomitant]
     Indication: RHEUMATOID ARTHRITIS
     Route: 048
  9. L THYROXINE [Concomitant]
  10. RABEPRAZOLE [Concomitant]
     Indication: GASTRIC DISORDER
  11. ATACAND PLUS [Concomitant]
     Indication: BLOOD PRESSURE INCREASED
  12. CEPHALEXIN [Concomitant]
     Dosage: FOR ONE WEEK
     Dates: start: 2013

REACTIONS (8)
  - Fungal infection [Not Recovered/Not Resolved]
  - Respiratory disorder [Not Recovered/Not Resolved]
  - Bronchitis [Unknown]
  - Malaise [Not Recovered/Not Resolved]
  - Nasopharyngitis [Not Recovered/Not Resolved]
  - Sensation of foreign body [Not Recovered/Not Resolved]
  - Dysphonia [Not Recovered/Not Resolved]
  - Oropharyngeal pain [Not Recovered/Not Resolved]
